FAERS Safety Report 13978889 (Version 5)
Quarter: 2018Q2

REPORT INFORMATION
  Report Type: Report from Study
  Country: US (occurrence: US)
  Receive Date: 20170915
  Receipt Date: 20180526
  Transmission Date: 20180711
  Serious: Yes (Hospitalization, Other)
  Sender: FDA-Public Use
  Company Number: PHEH2017US029838

PATIENT
  Age: 27 Year
  Sex: Male

DRUGS (2)
  1. LYSINE [Suspect]
     Active Substance: LYSINE
     Indication: MOUTH ULCERATION
     Route: 065
  2. AFINITOR [Suspect]
     Active Substance: EVEROLIMUS
     Indication: ASTROCYTOMA, LOW GRADE
     Dosage: 7.5 MG, QD
     Route: 048
     Dates: start: 20170703, end: 20171013

REACTIONS (8)
  - Thrombosis [Unknown]
  - Mouth ulceration [Unknown]
  - Septic shock [Unknown]
  - Stomatitis [Unknown]
  - Diarrhoea [Recovered/Resolved]
  - Decreased appetite [Unknown]
  - Pneumonia [Unknown]
  - Drooling [Unknown]

NARRATIVE: CASE EVENT DATE: 20170829
